FAERS Safety Report 21116990 (Version 7)
Quarter: 2022Q4

REPORT INFORMATION
  Report Type: Report from Study
  Country: FR (occurrence: FR)
  Receive Date: 20220722
  Receipt Date: 20221004
  Transmission Date: 20230112
  Serious: Yes (Death, Life-Threatening, Hospitalization, Disabling, Other)
  Sender: FDA-Public Use
  Company Number: FR-BRISTOL-MYERS SQUIBB COMPANY-2022-071998

PATIENT
  Age: 72 Year
  Sex: Male
  Weight: 80 kg

DRUGS (25)
  1. INVESTIGATIONAL PRODUCT [Suspect]
     Active Substance: INVESTIGATIONAL PRODUCT
     Indication: Primary myelofibrosis
     Dosage: PRIOR TO ONSET OF THE EVENT, HE RECEIVED HIS MOST RECENT DOSE OF STUDY THERAPY ON 04-JUL-2022.?DRUG
     Route: 048
     Dates: start: 20220623
  2. FEDRATINIB [Suspect]
     Active Substance: FEDRATINIB
     Indication: Primary myelofibrosis
     Dosage: MOST RECENT DOSE WAS RECEIVED AT A DOSE OF 400 MG (700 MG WAS PLANNED) ON 07-JUL-2022 AND 400 MG ON
     Route: 048
     Dates: start: 20220623
  3. ACETAMINOPHEN [Concomitant]
     Active Substance: ACETAMINOPHEN
     Indication: Product used for unknown indication
     Dosage: AS NEEDED.
     Route: 065
     Dates: start: 20220520
  4. KARDEGIC [Concomitant]
     Active Substance: ASPIRIN DL-LYSINE
     Indication: Product used for unknown indication
     Dosage: DAILY; PER DAY
     Route: 065
     Dates: start: 1998, end: 20220708
  5. ALLOPURINOL [Concomitant]
     Active Substance: ALLOPURINOL
     Indication: Product used for unknown indication
     Dosage: DAILY; PER DAY.
     Route: 065
     Dates: start: 20220623
  6. THIAMINE [Concomitant]
     Active Substance: THIAMINE
     Indication: Product used for unknown indication
     Dosage: DAILY; PER DAY.
     Route: 065
     Dates: start: 20220623
  7. SODIUM CHLORIDE [Concomitant]
     Active Substance: SODIUM CHLORIDE
     Indication: Product used for unknown indication
     Dosage: 1 DOSAGE FORM= 1 UNITS NOS, ONCE
     Route: 065
     Dates: start: 20220627, end: 20220627
  8. DULCOLAX (BISACODYL) [Concomitant]
     Active Substance: BISACODYL
     Indication: Product used for unknown indication
     Route: 065
     Dates: start: 20220630, end: 20220702
  9. ARTISIAL [Concomitant]
     Active Substance: CALCIUM CHLORIDE\MAGNESIUM CHLORIDE\POTASSIUM CHLORIDE\POTASSIUM PHOSPHATE, DIBASIC\POTASSIUM PHOSPH
     Indication: Product used for unknown indication
     Dosage: 1 DOSAGE FORM= 1 UNITS NOS, DAILY; PER DAY.
     Route: 065
     Dates: start: 20220630
  10. ONDANSETRON HYDROCHLORIDE [Concomitant]
     Active Substance: ONDANSETRON HYDROCHLORIDE
     Indication: Product used for unknown indication
     Dosage: BD; TWICE PER DAY.
     Route: 065
     Dates: start: 20220626
  11. HYDROCHLOROTHIAZIDE [Concomitant]
     Active Substance: HYDROCHLOROTHIAZIDE
     Indication: Product used for unknown indication
     Dosage: DAILY; PER DAY
     Route: 065
     Dates: start: 19980714, end: 20220627
  12. ALLOPURINOL [Concomitant]
     Active Substance: ALLOPURINOL
     Indication: Product used for unknown indication
     Dosage: DAILY; PER DAY
     Route: 065
     Dates: start: 20200901, end: 20220623
  13. IRBESARTAN [Concomitant]
     Active Substance: IRBESARTAN
     Indication: Product used for unknown indication
     Dosage: DAILY; PER DAY
     Route: 065
     Dates: start: 19980714, end: 20220627
  14. NEBIVOLOL [Concomitant]
     Active Substance: NEBIVOLOL
     Indication: Product used for unknown indication
     Dosage: DAILY; PER DAY.
     Route: 065
     Dates: start: 19980714
  15. RILMENIDINE PHOSPHATE [Concomitant]
     Active Substance: RILMENIDINE PHOSPHATE
     Indication: Product used for unknown indication
     Dosage: BD; TWICE PER DAY.
     Route: 065
     Dates: start: 19980714
  16. LERCANIDIPINE [Concomitant]
     Active Substance: LERCANIDIPINE
     Indication: Product used for unknown indication
     Dosage: DAILY; PER DAY.
     Route: 065
     Dates: start: 19980714
  17. URAPIDIL [Concomitant]
     Active Substance: URAPIDIL
     Indication: Product used for unknown indication
     Dosage: DAILY; PER DAY.
     Route: 065
     Dates: start: 19980714
  18. TAHOR [Concomitant]
     Active Substance: ATORVASTATIN CALCIUM
     Indication: Product used for unknown indication
     Dosage: DAILY; PER DAY.
     Route: 065
     Dates: start: 1998
  19. OMEPRAZOLE SODIUM [Concomitant]
     Active Substance: OMEPRAZOLE SODIUM
     Indication: Product used for unknown indication
     Dosage: DAILY; PER DAY.
     Route: 065
     Dates: start: 20200901
  20. PFIZER-BIONTECH COVID-19 VACCINE [Concomitant]
     Active Substance: TOZINAMERAN
     Indication: Product used for unknown indication
     Route: 065
     Dates: start: 20210201
  21. PFIZER-BIONTECH COVID-19 VACCINE [Concomitant]
     Active Substance: TOZINAMERAN
     Route: 065
     Dates: start: 20210301
  22. PFIZER-BIONTECH COVID-19 VACCINE [Concomitant]
     Active Substance: TOZINAMERAN
     Route: 065
     Dates: start: 20210707
  23. PFIZER-BIONTECH COVID-19 VACCINE [Concomitant]
     Active Substance: TOZINAMERAN
     Route: 065
     Dates: start: 20220118
  24. SODIUM ALGINATE\SODIUM BICARBONATE [Concomitant]
     Active Substance: SODIUM ALGINATE\SODIUM BICARBONATE
     Indication: Product used for unknown indication
     Dosage: 1 DF- 1 UNITS?AS NEEDED.
     Route: 065
     Dates: start: 20220628
  25. MIDAZOLAM [Concomitant]
     Active Substance: MIDAZOLAM
     Indication: Product used for unknown indication
     Dates: start: 20220618

REACTIONS (3)
  - Lung infiltration [Fatal]
  - Acute kidney injury [Not Recovered/Not Resolved]
  - Thrombocytopenia [Not Recovered/Not Resolved]

NARRATIVE: CASE EVENT DATE: 20220707
